FAERS Safety Report 18706785 (Version 1)
Quarter: 2021Q1

REPORT INFORMATION
  Report Type: Report from Study
  Country: IT (occurrence: IT)
  Receive Date: 20210106
  Receipt Date: 20210106
  Transmission Date: 20210419
  Serious: Yes (Other)
  Sender: FDA-Public Use
  Company Number: IT-PFIZER INC-2021004187

PATIENT
  Age: 82 Year
  Sex: Female

DRUGS (7)
  1. INDERAL [Concomitant]
     Active Substance: PROPRANOLOL HYDROCHLORIDE
     Dosage: UNK
  2. LORTAAN [Concomitant]
     Active Substance: LOSARTAN POTASSIUM
     Dosage: UNK
  3. ZIRTEC [Concomitant]
     Active Substance: CETIRIZINE HYDROCHLORIDE
     Dosage: UNK
  4. METFONORM [Concomitant]
     Active Substance: METFORMIN HYDROCHLORIDE
     Dosage: UNK
  5. MEDROL [Suspect]
     Active Substance: METHYLPREDNISOLONE
     Indication: OEDEMA MUCOSAL
     Dosage: UNK
     Route: 048
     Dates: start: 20201210, end: 20201213
  6. TOTALIP [Concomitant]
     Active Substance: ATORVASTATIN
     Dosage: UNK
  7. MINIAS [Concomitant]
     Active Substance: LORMETAZEPAM
     Dosage: UNK

REACTIONS (1)
  - Hypertensive crisis [Recovering/Resolving]

NARRATIVE: CASE EVENT DATE: 20201213
